FAERS Safety Report 20409595 (Version 1)
Quarter: 2022Q1

REPORT INFORMATION
  Report Type: Spontaneous
  Country: JP (occurrence: JP)
  Receive Date: 20220201
  Receipt Date: 20220201
  Transmission Date: 20220424
  Serious: Yes (Hospitalization, Other)
  Sender: FDA-Public Use
  Company Number: JP-GLAXOSMITHKLINE-JP2022JPN014955

PATIENT
  Age: 41 Year
  Sex: Male
  Weight: 79.1 kg

DRUGS (11)
  1. ATOVAQUONE [Suspect]
     Active Substance: ATOVAQUONE
     Indication: Infection prophylaxis
     Dosage: 1500 MG, BID
     Route: 048
     Dates: start: 20211009, end: 20211122
  2. NEXIUM [Suspect]
     Active Substance: ESOMEPRAZOLE MAGNESIUM
     Indication: Prophylaxis
     Dosage: 20 MG, QD
     Route: 048
     Dates: start: 20210925, end: 20211207
  3. PREDONINE [Concomitant]
     Active Substance: PREDNISOLONE
     Dosage: 40 MG, 1D
     Dates: start: 20210812, end: 2021
  4. PREDONINE [Concomitant]
     Active Substance: PREDNISOLONE
     Dosage: 30 MG, 1D
     Dates: start: 2021, end: 20211008
  5. PREDONINE [Concomitant]
     Active Substance: PREDNISOLONE
     Dosage: 17.5 MG, QD
     Dates: start: 20211009, end: 20211129
  6. TACROLIMUS [Concomitant]
     Active Substance: TACROLIMUS
     Indication: Neuromyelitis optica spectrum disorder
     Dosage: 3 MG, 1D
     Dates: start: 2021, end: 20210913
  7. DAIPHEN COMBINATION TABLETS [Concomitant]
     Indication: Infection prophylaxis
     Dosage: 1 DF, 1D
     Dates: start: 2021, end: 20210913
  8. EBRANTIL CAPSULES [Concomitant]
     Indication: Dysuria
     Dosage: 30 MG, 1D
     Dates: start: 2021, end: 20210913
  9. LANSOPRAZOLE-OD TABLETS [Concomitant]
     Dosage: UNK
     Dates: start: 2021, end: 20210913
  10. AMITIZA CAPSULE [Concomitant]
     Dosage: UNK
     Dates: start: 2021, end: 20210913
  11. METHYCOBAL TABLET [Concomitant]
     Dosage: UNK
     Dates: start: 2021, end: 20210913

REACTIONS (7)
  - Drug-induced liver injury [Not Recovered/Not Resolved]
  - Hepatitis acute [Unknown]
  - Pancytopenia [Not Recovered/Not Resolved]
  - Diarrhoea [Unknown]
  - Pyrexia [Unknown]
  - Disseminated intravascular coagulation [Unknown]
  - Prescribed overdose [Unknown]

NARRATIVE: CASE EVENT DATE: 20211009
